FAERS Safety Report 9441498 (Version 1)
Quarter: 2013Q3

REPORT INFORMATION
  Report Type: Spontaneous
  Country: US (occurrence: US)
  Receive Date: 20130805
  Receipt Date: 20130805
  Transmission Date: 20140515
  Serious: No
  Sender: FDA-Public Use
  Company Number: US-PFIZER INC-2013226483

PATIENT
  Age: 61 Year
  Sex: Female
  Weight: 109 kg

DRUGS (6)
  1. ALTACE [Concomitant]
     Indication: HYPERTENSION
     Dosage: 10 MG, DAILY
  2. ALPRAZOLAM [Concomitant]
     Dosage: 0.5 MG, DAILY
  3. ULTRACET [Concomitant]
     Indication: BACK DISORDER
     Dosage: TRAMADOL 37.5 MG/ ACETAMINOPHEN 325 MG, 2X/DAY
  4. VIMOVO [Concomitant]
     Indication: BACK DISORDER
     Dosage: NAPROXEN 500 MG/ESOMEPRAZOLE MAGNESIUM 20 MG, DAILY
  5. ATORVASTATIN CALCIUM [Suspect]
     Indication: BLOOD CHOLESTEROL INCREASED
     Dosage: 10 MG, DAILY
     Dates: start: 2013
  6. COREG [Concomitant]
     Indication: HYPERTENSION
     Dosage: HALF OF 6.25 MG PILL, 2X/DAY

REACTIONS (1)
  - Urticaria [Not Recovered/Not Resolved]
